FAERS Safety Report 21052907 (Version 2)
Quarter: 2022Q3

REPORT INFORMATION
  Report Type: Spontaneous
  Country: RO (occurrence: RO)
  Receive Date: 20220707
  Receipt Date: 20220719
  Transmission Date: 20221026
  Serious: Yes (Other)
  Sender: FDA-Public Use
  Company Number: RO-NOVARTISPH-NVSC2022RO152206

PATIENT

DRUGS (9)
  1. OMEPRAZOLE [Suspect]
     Active Substance: OMEPRAZOLE
     Indication: Foetal exposure during pregnancy
     Dosage: MATERNAL DOSE: 40 MG
     Route: 064
  2. AMOXICILLIN\CLAVULANIC ACID [Suspect]
     Active Substance: AMOXICILLIN\CLAVULANIC ACID
     Indication: Foetal exposure during pregnancy
     Dosage: MATERNAL DOSE: 1 DOSAGE FORM, Q12H FOR 5 DAYS (875MG/125MG, 1TB/12 HOURS)
     Route: 064
  3. DEOXYCHOLIC ACID [Suspect]
     Active Substance: DEOXYCHOLIC ACID
     Indication: Foetal exposure during pregnancy
     Dosage: MATERNAL DOSE: 2 DOSAGE FORM, QD (2 TB/DAY,250MG, 2TB/DAY)
     Route: 064
  4. PREDNISONE [Suspect]
     Active Substance: PREDNISONE
     Indication: Foetal exposure during pregnancy
     Dosage: MATERNAL DOSE: 6 DOSAGE FORM, QD (6 TB/DAY, 5MG, 6 TB/DAY)
     Route: 064
  5. CETIRIZINE HYDROCHLORIDE [Suspect]
     Active Substance: CETIRIZINE HYDROCHLORIDE
     Indication: Foetal exposure during pregnancy
     Dosage: MATERNAL DOSE: 10 MG
     Route: 064
  6. URSODIOL [Suspect]
     Active Substance: URSODIOL
     Indication: Foetal exposure during pregnancy
     Dosage: MATERNAL DOSE: UNK
     Route: 064
  7. DEXAMETHASONE [Suspect]
     Active Substance: DEXAMETHASONE
     Indication: Foetal exposure during pregnancy
     Dosage: MATERNAL DOSE: 8 MG, Q12H I.M/I.V
     Route: 064
  8. BENZALKONIUM CHLORIDE\CHLORHEXIDINE [Suspect]
     Active Substance: BENZALKONIUM CHLORIDE\CHLORHEXIDINE
     Indication: Foetal exposure during pregnancy
     Dosage: MATERNAL DOSE: UNK, BID (LOCAL SKIN APPLICATION OF SOLUTION)
     Route: 064
  9. BENZALKONIUM CHLORIDE\CHLORHEXIDINE [Suspect]
     Active Substance: BENZALKONIUM CHLORIDE\CHLORHEXIDINE
     Dosage: MATERNAL DOSE: 0.5, BID
     Route: 064

REACTIONS (3)
  - Premature baby [Unknown]
  - Pemphigus [Unknown]
  - Foetal exposure during pregnancy [Unknown]
